FAERS Safety Report 5616635-4 (Version None)
Quarter: 2008Q1

REPORT INFORMATION
  Report Type: 
  Country: None (occurrence: None)
  Receive Date: 20080207
  Receipt Date: 20071127
  Transmission Date: 20080703
  Serious: No
  Sender: FDA-Public Use
  Company Number: A0696049A

PATIENT
  Age: 76 Year
  Sex: Female

DRUGS (5)
  1. PAXIL CR [Suspect]
     Indication: PANIC DISORDER
     Dosage: 25MG TWICE PER DAY
     Route: 048
  2. SEROQUEL [Concomitant]
  3. CLONAZEPAM [Concomitant]
  4. ADVAIR DISKUS 100/50 [Concomitant]
     Route: 055
  5. ALBUTEROL NEBULIZERS [Concomitant]

REACTIONS (4)
  - INSOMNIA [None]
  - RESPIRATORY DISORDER [None]
  - STRESS [None]
  - TREMOR [None]
